FAERS Safety Report 14600655 (Version 2)
Quarter: 2018Q4

REPORT INFORMATION
  Report Type: Spontaneous
  Country: BR (occurrence: BR)
  Receive Date: 20180305
  Receipt Date: 20181206
  Transmission Date: 20190204
  Serious: Yes (Other)
  Sender: FDA-Public Use
  Company Number: BR-BIOMARINAP-BR-2018-117284

PATIENT
  Age: 17 Year
  Sex: Male
  Weight: 32 kg

DRUGS (1)
  1. ALDURAZYME [Suspect]
     Active Substance: LARONIDASE
     Indication: MUCOPOLYSACCHARIDOSIS
     Dosage: UNK, QOW
     Route: 041
     Dates: start: 20070901

REACTIONS (5)
  - Tracheal disorder [Not Recovered/Not Resolved]
  - Surgery [Unknown]
  - Cardiac disorder [Unknown]
  - Product use issue [Unknown]
  - Malaise [Unknown]

NARRATIVE: CASE EVENT DATE: 201302
